FAERS Safety Report 5210496-3 (Version None)
Quarter: 2006Q4

REPORT INFORMATION
  Report Type: 
  Country: None (occurrence: None)
  Receive Date: 20061106
  Receipt Date: 20051011
  Transmission Date: 20070319
  Serious: No
  Sender: FDA-Public Use
  Company Number: US-JNJFOC-20051003020

PATIENT
  Sex: Female

DRUGS (1)
  1. MOTRIN [Suspect]
     Indication: DRUG USE FOR UNKNOWN INDICATION

REACTIONS (3)
  - HYPERSENSITIVITY [None]
  - RHINORRHOEA [None]
  - WHEEZING [None]
